FAERS Safety Report 23203205 (Version 1)
Quarter: 2023Q4

REPORT INFORMATION
  Report Type: Spontaneous
  Country: US (occurrence: US)
  Receive Date: 20231120
  Receipt Date: 20231120
  Transmission Date: 20240110
  Serious: No
  Sender: FDA-Public Use
  Company Number: US-BAUSCHBL-2023BNL011358

PATIENT
  Age: 22 Year
  Sex: Female
  Weight: 53.52 kg

DRUGS (2)
  1. VITRASE [Suspect]
     Active Substance: HYALURONIDASE, OVINE
     Indication: Dermal filler injection
     Route: 065
     Dates: start: 202303
  2. AMPICILLIN [Concomitant]
     Active Substance: AMPICILLIN
     Indication: Product used for unknown indication
     Route: 048
     Dates: start: 20231010

REACTIONS (3)
  - Ill-defined disorder [Unknown]
  - Patient dissatisfaction with treatment [Unknown]
  - Product solubility abnormal [Unknown]

NARRATIVE: CASE EVENT DATE: 20230301
